FAERS Safety Report 18759094 (Version 1)
Quarter: 2021Q1

REPORT INFORMATION
  Report Type: Spontaneous
  Country: CN (occurrence: CN)
  Receive Date: 20210120
  Receipt Date: 20210120
  Transmission Date: 20210419
  Serious: Yes (Other)
  Sender: FDA-Public Use
  Company Number: CN-LUPIN PHARMACEUTICALS INC.-2020-09622

PATIENT
  Age: 42 Year
  Sex: Female

DRUGS (17)
  1. MORPHINE SULPHATE [Suspect]
     Active Substance: MORPHINE SULFATE
     Dosage: 330 MILLIGRAM, BID, EXTENDED RELEASE TABLETS; ON DAY 6 AND 7
     Route: 048
     Dates: start: 201903, end: 201903
  2. MORPHINE SULPHATE [Suspect]
     Active Substance: MORPHINE SULFATE
     Dosage: 240 MILLIGRAM, QD, INFUSION PUMP FROM DAY 28
     Route: 042
  3. MORPHINE SULPHATE [Suspect]
     Active Substance: MORPHINE SULFATE
     Dosage: 120 MILLIGRAM, IMMEDIATE RELEASE TABLETS; ON DAY 2; BREAKTHROUGH PAIN WAS NOTED FOR 7 TIMES ON DAY 2
     Route: 048
     Dates: start: 201903, end: 201903
  4. MORPHINE SULPHATE [Suspect]
     Active Substance: MORPHINE SULFATE
     Dosage: 120 MILLIGRAM, IMMEDIATE RELEASE TABLETS; ON DAY 3; BREAKTHROUGH PAIN WAS NOTED FOR 7 TIMES ON DAY 3
     Route: 048
     Dates: start: 201903, end: 201903
  5. MORPHINE SULPHATE [Suspect]
     Active Substance: MORPHINE SULFATE
     Dosage: 180 MILLIGRAM, IMMEDIATE RELEASE TABLETS; ON DAY 4; BREAKTHROUGH PAIN WAS NOTED FOR 10 TIMES ON DAY
     Route: 048
     Dates: start: 201903, end: 201903
  6. MORPHINE SULPHATE [Suspect]
     Active Substance: MORPHINE SULFATE
     Dosage: 90 MILLIGRAM, BID, EXTENDED RELEASE TABLETS; ON DAY 3
     Route: 048
     Dates: start: 201903, end: 201903
  7. MORPHINE SULPHATE [Suspect]
     Active Substance: MORPHINE SULFATE
     Dosage: 30 MILLIGRAM, IMMEDIATE RELEASE TABLETS; ON DAY 7; BREAKTHROUGH PAIN WAS NOTED FOR 1 TIME ON DAY 7 A
     Route: 048
     Dates: start: 201903, end: 201903
  8. MORPHINE SULPHATE [Suspect]
     Active Substance: MORPHINE SULFATE
     Indication: HEADACHE
     Dosage: 30 MILLIGRAM, BID, EXTENDED RELEASE TABLETS; ON DAY 2
     Route: 048
     Dates: start: 201903, end: 201903
  9. MORPHINE SULPHATE [Suspect]
     Active Substance: MORPHINE SULFATE
     Dosage: 240 MILLIGRAM, QD, SINCE DAY 22
     Route: 065
     Dates: start: 2019, end: 2019
  10. MORPHINE SULPHATE [Suspect]
     Active Substance: MORPHINE SULFATE
     Dosage: 30 MILLIGRAM, IMMEDIATE RELEASE TABLETS; ON DAY 6; BREAKTHROUGH PAIN WAS NOTED FOR 1 TIME ON DAY 6 A
     Route: 048
     Dates: start: 201903, end: 201903
  11. MORPHINE SULPHATE [Suspect]
     Active Substance: MORPHINE SULFATE
     Dosage: 240 MILLIGRAM, QD, INFUSION PUMP FROM DAY 22
     Route: 042
  12. MORPHINE SULPHATE [Suspect]
     Active Substance: MORPHINE SULFATE
     Indication: CANCER PAIN
     Dosage: 5 MILLIGRAM, HYPODERMIC INJECTION ON DAY 1
     Route: 003
     Dates: start: 20190312, end: 20190312
  13. MORPHINE SULPHATE [Suspect]
     Active Substance: MORPHINE SULFATE
     Dosage: 240 MILLIGRAM, BID, EXTENDED RELEASE TABLETS; ON DAY 5
     Route: 048
     Dates: start: 201903, end: 201903
  14. MORPHINE SULPHATE [Suspect]
     Active Substance: MORPHINE SULFATE
     Dosage: 480 MILLIGRAM, QD, DAY 28
     Route: 065
     Dates: start: 2019, end: 2019
  15. MORPHINE SULPHATE [Suspect]
     Active Substance: MORPHINE SULFATE
     Dosage: 180 MILLIGRAM, IMMEDIATE RELEASE TABLETS; ON DAY 5; BREAKTHROUGH PAIN WAS NOTED FOR 6 TIMES ON DAY 5
     Route: 048
     Dates: start: 201903, end: 201903
  16. MORPHINE SULPHATE [Suspect]
     Active Substance: MORPHINE SULFATE
     Dosage: 150 MILLIGRAM, BID, EXTENDED RELEASE TABLETS; ON DAY 4
     Route: 048
     Dates: start: 201903, end: 201903
  17. MORPHINE SULPHATE [Suspect]
     Active Substance: MORPHINE SULFATE
     Dosage: 180 MILLIGRAM, IMMEDIATE RELEASE TABLETS; ON DAY 5; BREAKTHROUGH PAIN WAS NOTED FOR 6 TIMES ON DAY 5
     Route: 048
     Dates: start: 201903, end: 201903

REACTIONS (8)
  - Nausea [Unknown]
  - Drug tolerance [Unknown]
  - Muscular weakness [Recovering/Resolving]
  - Lethargy [Unknown]
  - Pruritus [Unknown]
  - Hypoaesthesia [Unknown]
  - Vomiting [Unknown]
  - Urinary retention [Unknown]

NARRATIVE: CASE EVENT DATE: 2019
